FAERS Safety Report 18217887 (Version 2)
Quarter: 2020Q3

REPORT INFORMATION
  Report Type: Spontaneous
  Country: US (occurrence: US)
  Receive Date: 20200901
  Receipt Date: 20200922
  Transmission Date: 20201103
  Serious: Yes (Other)
  Sender: FDA-Public Use
  Company Number: US-PFIZER INC-2020336214

PATIENT
  Age: 68 Year
  Sex: Male

DRUGS (1)
  1. FLECTOR [Suspect]
     Active Substance: DICLOFENAC EPOLAMINE
     Indication: PAIN
     Dosage: 2X/DAY
     Route: 062

REACTIONS (3)
  - Mental impairment [Unknown]
  - Off label use [Unknown]
  - Product use in unapproved indication [Unknown]
